FAERS Safety Report 24589063 (Version 7)
Quarter: 2025Q1

REPORT INFORMATION
  Report Type: Report from Study
  Country: CA (occurrence: CA)
  Receive Date: 20241107
  Receipt Date: 20250307
  Transmission Date: 20250408
  Serious: Yes (Hospitalization, Other)
  Sender: BIOCON
  Company Number: CA-BIOCON BIOLOGICS LIMITED-BBL2024007773

PATIENT

DRUGS (3)
  1. HULIO [Suspect]
     Active Substance: ADALIMUMAB-FKJP
     Indication: Colitis ulcerative
     Route: 058
     Dates: start: 20240830
  2. HULIO [Suspect]
     Active Substance: ADALIMUMAB-FKJP
     Route: 058
     Dates: start: 20240830, end: 20250219
  3. MESALAMINE [Concomitant]
     Active Substance: MESALAMINE
     Indication: Colitis ulcerative
     Route: 048

REACTIONS (12)
  - Hospitalisation [Unknown]
  - Illness [Unknown]
  - Haemoglobin decreased [Unknown]
  - Platelet count decreased [Unknown]
  - Colitis ulcerative [Unknown]
  - Anal incontinence [Unknown]
  - Asthenia [Unknown]
  - Frequent bowel movements [Unknown]
  - Malaise [Unknown]
  - Dermatitis allergic [Recovering/Resolving]
  - Off label use [Unknown]
  - Drug ineffective [Unknown]
